FAERS Safety Report 16306082 (Version 1)
Quarter: 2020Q3

REPORT INFORMATION
  Report Type: Report from Study
  Country: BE (occurrence: BE)
  Receive Date: 20190513
  Receipt Date: 20190513
  Transmission Date: 20201104
  Serious: Yes (Life-Threatening, Hospitalization)
  Sender: FDA-Public Use
  Company Number: BE-JNJFOC-20180325578

PATIENT
  Age: 47 Year
  Sex: Male
  Weight: 83 kg

DRUGS (24)
  1. SEROQUEL [Concomitant]
     Active Substance: QUETIAPINE FUMARATE
     Indication: AGITATION
     Route: 048
     Dates: start: 20180430
  2. ESKETAMINE [Suspect]
     Active Substance: ESKETAMINE
     Indication: MAJOR DEPRESSION
     Route: 045
     Dates: start: 20180314, end: 20180317
  3. SEROQUEL [Concomitant]
     Active Substance: QUETIAPINE FUMARATE
     Indication: MAJOR DEPRESSION
     Route: 048
     Dates: start: 20180310, end: 20180314
  4. SEROQUEL [Concomitant]
     Active Substance: QUETIAPINE FUMARATE
     Indication: AGITATION
     Route: 048
     Dates: start: 20180310, end: 20180314
  5. ESKETAMINE [Suspect]
     Active Substance: ESKETAMINE
     Indication: SUICIDAL IDEATION
     Route: 045
     Dates: start: 20180314, end: 20180317
  6. ZYPREXA [Concomitant]
     Active Substance: OLANZAPINE
     Indication: DEPRESSION
     Route: 048
     Dates: start: 20171114
  7. SEROQUEL [Concomitant]
     Active Substance: QUETIAPINE FUMARATE
     Indication: SUICIDAL IDEATION
     Route: 048
     Dates: start: 20180310, end: 20180314
  8. SEROQUEL [Concomitant]
     Active Substance: QUETIAPINE FUMARATE
     Indication: SUICIDAL IDEATION
     Route: 048
     Dates: start: 20180430
  9. SERTRALINE [Concomitant]
     Active Substance: SERTRALINE HYDROCHLORIDE
     Indication: MAJOR DEPRESSION
     Route: 048
     Dates: start: 20180309
  10. NORTRILEN [Concomitant]
     Active Substance: NORTRIPTYLINE
     Indication: DEPRESSION
     Route: 048
     Dates: start: 20180501
  11. LORAZEPAM. [Concomitant]
     Active Substance: LORAZEPAM
     Indication: AGITATION
     Route: 048
     Dates: start: 20180309, end: 20180309
  12. SERTRALINE [Concomitant]
     Active Substance: SERTRALINE HYDROCHLORIDE
     Indication: SUICIDAL IDEATION
     Route: 048
     Dates: start: 20180309
  13. ESKETAMINE [Suspect]
     Active Substance: ESKETAMINE
     Indication: MAJOR DEPRESSION
     Route: 045
     Dates: start: 20180327
  14. EFFEXOR [Concomitant]
     Active Substance: VENLAFAXINE HYDROCHLORIDE
     Indication: DEPRESSION
     Route: 048
     Dates: start: 20171114
  15. ANAFRANIL [Concomitant]
     Active Substance: CLOMIPRAMINE HYDROCHLORIDE
     Indication: SUICIDAL IDEATION
     Route: 048
     Dates: start: 20180309, end: 20180430
  16. SEROQUEL [Concomitant]
     Active Substance: QUETIAPINE FUMARATE
     Indication: MAJOR DEPRESSION
     Route: 048
     Dates: start: 20180430
  17. TEMESTA [Concomitant]
     Indication: AGITATION
     Route: 048
     Dates: start: 20180502
  18. LORAZEPAM. [Concomitant]
     Active Substance: LORAZEPAM
     Indication: AGITATION
     Route: 048
     Dates: start: 20180309
  19. SEROQUEL [Concomitant]
     Active Substance: QUETIAPINE FUMARATE
     Indication: SUICIDAL IDEATION
     Route: 048
     Dates: start: 20180309
  20. SEROQUEL [Concomitant]
     Active Substance: QUETIAPINE FUMARATE
     Indication: AGITATION
     Route: 048
     Dates: start: 20180309
  21. ESKETAMINE [Suspect]
     Active Substance: ESKETAMINE
     Indication: SUICIDAL IDEATION
     Route: 045
     Dates: start: 20180327
  22. ANAFRANIL [Concomitant]
     Active Substance: CLOMIPRAMINE HYDROCHLORIDE
     Indication: MAJOR DEPRESSION
     Route: 048
     Dates: start: 20180309, end: 20180430
  23. SEROQUEL [Concomitant]
     Active Substance: QUETIAPINE FUMARATE
     Indication: MAJOR DEPRESSION
     Route: 048
     Dates: start: 20180309
  24. PANTOPRAZOLE [Concomitant]
     Active Substance: PANTOPRAZOLE
     Indication: PROPHYLAXIS AGAINST GASTROINTESTINAL ULCER
     Route: 048
     Dates: start: 20180402

REACTIONS (1)
  - Suicide attempt [Recovered/Resolved]

NARRATIVE: CASE EVENT DATE: 20180318
